FAERS Safety Report 5189878-4 (Version None)
Quarter: 2006Q4

REPORT INFORMATION
  Report Type: 
  Country: None (occurrence: None)
  Receive Date: 20061218
  Receipt Date: 20061206
  Transmission Date: 20070319
  Serious: Yes (Hospitalization, Other)
  Sender: FDA-Public Use
  Company Number: 2006133647

PATIENT
  Age: 80 Year
  Sex: Male
  Weight: 44 kg

DRUGS (9)
  1. ALDACTONE [Suspect]
     Indication: CARDIAC FAILURE
     Dosage: 25 MG (25 MG, 1 IN 1 D), ORAL
     Route: 048
     Dates: start: 20061020, end: 20061030
  2. LASIX [Suspect]
     Indication: CARDIAC FAILURE
     Dosage: 20 MG (20 MG, 1 IN 1 D), ORAL
     Route: 048
     Dates: start: 20061020, end: 20061030
  3. URALYT (ARNICA EXTRACT, CONVALLARIA GLYCOSIDES, ECHINACEA ANGUSTIFOLIA [Concomitant]
  4. GASLON (IRSOGLADINE MALEATE) [Concomitant]
  5. ALLOPURINOL [Concomitant]
  6. AIDEITO (ALLOPURINOL) [Concomitant]
  7. AMISALIN (PROCAINAMIDE HYDROCHLORIDE) [Concomitant]
  8. LUPRAC (TORASEMIDE) [Concomitant]
  9. YOULACTONE (SPIRONOLACTONE) [Concomitant]

REACTIONS (5)
  - ADENOCARCINOMA PANCREAS [None]
  - BACTERIAL INFECTION [None]
  - BLOOD LACTATE DEHYDROGENASE INCREASED [None]
  - HAEMOLYSIS [None]
  - HAEMOLYTIC ANAEMIA [None]
